FAERS Safety Report 26206606 (Version 1)
Quarter: 2025Q4

REPORT INFORMATION
  Report Type: Spontaneous
  Country: IR (occurrence: IR)
  Receive Date: 20251229
  Receipt Date: 20251229
  Transmission Date: 20260117
  Serious: Yes (Death, Hospitalization, Other)
  Sender: Onesource Specialty Pharma
  Company Number: IR-STRIDES ARCOLAB LIMITED-2025OS001557

PATIENT
  Age: 45 Year
  Sex: Female

DRUGS (11)
  1. AMPICILLIN AND SULBACTAM [Suspect]
     Active Substance: AMPICILLIN SODIUM\SULBACTAM SODIUM
     Indication: Acinetobacter infection
     Dosage: 3 GRAM, EVERY 6 HRS
     Route: 042
  2. COLISTIN [Suspect]
     Active Substance: COLISTIN
     Indication: Acinetobacter infection
     Dosage: UNK
     Route: 042
  3. COLISTIN [Suspect]
     Active Substance: COLISTIN
     Dosage: UNK
     Route: 037
  4. CEFTAZIDIME [Concomitant]
     Active Substance: CEFTAZIDIME
     Indication: Antibiotic prophylaxis
     Dosage: 2 GRAM, EVERY 8 HOURS
     Route: 065
  5. VANCOMYCIN [Concomitant]
     Active Substance: VANCOMYCIN
     Indication: Antibiotic prophylaxis
     Dosage: 1 GRAM, EVERY 12 HRS
     Route: 065
  6. MEROPENEM [Concomitant]
     Active Substance: MEROPENEM
     Indication: Antibiotic prophylaxis
     Dosage: 1 GRAM, EVERY 8 HOURS
     Route: 065
  7. IBUPROFEN [Concomitant]
     Active Substance: IBUPROFEN
     Indication: Rheumatoid arthritis
     Dosage: UNK
     Route: 065
  8. NAPROXEN [Concomitant]
     Active Substance: NAPROXEN
     Indication: Rheumatoid arthritis
     Dosage: UNK
     Route: 065
  9. LACTULOSE [Concomitant]
     Active Substance: LACTULOSE
     Indication: Constipation prophylaxis
     Dosage: UNK
     Route: 065
  10. METHYLPREDNISOLONE [Concomitant]
     Active Substance: METHYLPREDNISOLONE
     Indication: Rheumatoid arthritis
     Dosage: UNK
     Route: 065
  11. METHOTREXATE [Concomitant]
     Active Substance: METHOTREXATE
     Indication: Rheumatoid arthritis
     Dosage: UNK
     Route: 065

REACTIONS (2)
  - Septic shock [Fatal]
  - Drug ineffective [Fatal]
